FAERS Safety Report 9275049 (Version 1)
Quarter: 2013Q2

REPORT INFORMATION
  Report Type: Report from Study
  Country: MX (occurrence: MX)
  Receive Date: 20130507
  Receipt Date: 20130507
  Transmission Date: 20140414
  Serious: Yes (Hospitalization, Other)
  Sender: FDA-Public Use
  Company Number: PHHY2013MX029933

PATIENT
  Age: 69 Year
  Sex: Female

DRUGS (3)
  1. GALVUS [Suspect]
     Indication: DIABETES MELLITUS
     Dosage: 2 DF, (50MG), DAILY
     Route: 048
     Dates: start: 201210
  2. DIOVAN [Suspect]
     Indication: HYPERTENSION
     Dosage: 2 DF(80 MG), DAILY
  3. INSULIN [Concomitant]
     Dosage: UNK UKN, UNK

REACTIONS (5)
  - Fall [Recovered/Resolved]
  - Facial bones fracture [Recovered/Resolved]
  - Bone disorder [Not Recovered/Not Resolved]
  - Depression [Unknown]
  - Blood glucose increased [Not Recovered/Not Resolved]
